FAERS Safety Report 8679987 (Version 4)
Quarter: 2013Q1

REPORT INFORMATION
  Report Type: Report from Study
  Country: JP (occurrence: JP)
  Receive Date: 20120724
  Receipt Date: 20130102
  Transmission Date: 20140127
  Serious: Yes (Death, Life-Threatening)
  Sender: FDA-Public Use
  Company Number: JP-NAPPMUNDI-MAG-2012-0002240

PATIENT
  Age: 72 Year
  Sex: Male

DRUGS (17)
  1. OXYCODONE HCL [Suspect]
     Indication: CANCER PAIN
     Dosage: 90 MG, DAILY
     Route: 048
     Dates: start: 20120625, end: 20120703
  2. OXYCODONE HCL PR TABLET 20 MG [Suspect]
     Dosage: 75 MG, DAILY
     Route: 048
     Dates: start: 20120623, end: 20120624
  3. OXYCODONE HCL PR TABLET 20 MG [Suspect]
     Dosage: 60 MG, DAILY
     Route: 048
     Dates: start: 20120618, end: 20120622
  4. OXYCODONE HCL PR TABLET 20 MG [Suspect]
     Dosage: 40 MG, DAILY
     Route: 048
     Dates: start: 20120616, end: 20120617
  5. OXYCODONE HCL IR POWDER 0.5% [Suspect]
     Indication: CANCER PAIN
     Dosage: 10 MG, DAILY
     Route: 048
     Dates: start: 20120618, end: 20120704
  6. OXYCODONE HCL IR POWDER 0.5% [Suspect]
     Dosage: 5 MG, DAILY
     Route: 048
     Dates: start: 20120615, end: 20120617
  7. CYMBALTA [Suspect]
     Indication: CANCER PAIN
     Dosage: UNK
     Route: 048
     Dates: start: 20120625, end: 20120703
  8. HYPEN                              /00613801/ [Concomitant]
     Indication: CANCER PAIN
     Dosage: UNK
     Route: 048
     Dates: start: 20120528, end: 20120703
  9. TAKEPRON [Concomitant]
     Indication: PROPHYLAXIS
     Dosage: UNK
     Route: 048
     Dates: start: 20120528, end: 20120703
  10. FLOMOX [Concomitant]
     Dosage: UNK
     Route: 048
     Dates: start: 20120618, end: 20120621
  11. LYRICA [Concomitant]
     Indication: CANCER PAIN
     Dosage: UNK
     Route: 048
     Dates: start: 20120620, end: 20120624
  12. MAGMITT [Concomitant]
     Indication: PROPHYLAXIS
     Dosage: UNK
     Route: 048
     Dates: start: 20120623, end: 20120703
  13. VOLTAREN                           /00372301/ [Concomitant]
     Indication: CANCER PAIN
     Dosage: UNK
     Route: 048
     Dates: start: 20120626, end: 20120703
  14. VOLTAREN                           /00372301/ [Concomitant]
     Dosage: UNK
     Route: 048
     Dates: start: 20120528, end: 20120625
  15. ZOMETA [Concomitant]
     Indication: BLADDER CANCER
     Dosage: UNK
     Dates: start: 20120628, end: 20120628
  16. ZOMETA [Concomitant]
     Indication: METASTASES TO BONE
  17. LASIX                              /00032601/ [Concomitant]
     Dosage: UNK
     Dates: start: 20120630, end: 20120701

REACTIONS (4)
  - Pneumonia aspiration [Fatal]
  - Sputum retention [Not Recovered/Not Resolved]
  - Somnolence [Not Recovered/Not Resolved]
  - Sputum retention [None]
